FAERS Safety Report 9799519 (Version 1)
Quarter: 2014Q1

REPORT INFORMATION
  Report Type: Spontaneous
  Country: US (occurrence: None)
  Receive Date: 20140103
  Receipt Date: 20140103
  Transmission Date: 20141002
  Serious: No
  Sender: FDA-Public Use
  Company Number: NXG-13-018

PATIENT
  Sex: Male

DRUGS (3)
  1. FIORICET [Suspect]
     Indication: HEADACHE
  2. FIORICET [Suspect]
     Indication: BACK PAIN
  3. FIORICET [Suspect]
     Indication: NECK PAIN

REACTIONS (3)
  - No therapeutic response [None]
  - Dyspepsia [None]
  - Vomiting [None]
